FAERS Safety Report 10909203 (Version 1)
Quarter: 2015Q1

REPORT INFORMATION
  Report Type: Spontaneous
  Country: US (occurrence: US)
  Receive Date: 20150312
  Receipt Date: 20150312
  Transmission Date: 20150721
  Serious: No
  Sender: FDA-Public Use
  Company Number: US-SA-2014SA036210

PATIENT
  Age: 70 Year
  Sex: Female
  Weight: 83.91 kg

DRUGS (4)
  1. NASACORT ALLERGY 24HR [Suspect]
     Active Substance: TRIAMCINOLONE ACETONIDE
     Indication: NASAL CONGESTION
     Dosage: DOSE: 120 SPRAY
     Route: 065
     Dates: start: 20140315
  2. NASACORT ALLERGY 24HR [Suspect]
     Active Substance: TRIAMCINOLONE ACETONIDE
     Indication: RHINORRHOEA
     Dosage: DOSE: 120 SPRAY
     Route: 065
     Dates: start: 20140315
  3. PREMARIN [Concomitant]
     Active Substance: ESTROGENS, CONJUGATED
     Route: 065
  4. NASACORT ALLERGY 24HR [Suspect]
     Active Substance: TRIAMCINOLONE ACETONIDE
     Indication: HYPERSENSITIVITY
     Dosage: DOSE: 120 SPRAY
     Route: 065
     Dates: start: 20140315

REACTIONS (1)
  - Drug ineffective [Unknown]
